FAERS Safety Report 7273405-1 (Version None)
Quarter: 2011Q1

REPORT INFORMATION
  Report Type: 
  Country: None (occurrence: None)
  Receive Date: 20110203
  Receipt Date: 20100908
  Transmission Date: 20110831
  Serious: No
  Sender: FDA-Public Use
  Company Number: US-ABBOTT-10P-163-0670462-00

PATIENT
  Sex: Female
  Weight: 74.91 kg

DRUGS (6)
  1. SYNTHROID [Suspect]
     Dates: start: 20100831
  2. ENDURAL [Concomitant]
     Indication: PRODUCT USED FOR UNKNOWN INDICATION
  3. SYNTHROID [Suspect]
     Indication: HYPOTHYROIDISM
     Dates: start: 20080101, end: 20100831
  4. UNKNOWN VITAMIN [Concomitant]
     Indication: VITAMIN SUPPLEMENTATION
  5. HIGH CHERRY EXTRACT [Concomitant]
     Indication: ARTHRALGIA
  6. OIL LEAF [Concomitant]
     Indication: ARTHRALGIA

REACTIONS (8)
  - HOT FLUSH [None]
  - VENTRICULAR EXTRASYSTOLES [None]
  - NERVOUSNESS [None]
  - HYPOTENSION [None]
  - HYPERSENSITIVITY [None]
  - FOOT FRACTURE [None]
  - ELECTROCARDIOGRAM ABNORMAL [None]
  - SLEEP DISORDER [None]
